FAERS Safety Report 4710957-7 (Version None)
Quarter: 2005Q3

REPORT INFORMATION
  Report Type: 
  Country: None (occurrence: None)
  Receive Date: 20050711
  Receipt Date: 20050622
  Transmission Date: 20060218
  Serious: Yes (Other)
  Sender: FDA-Public Use
  Company Number: PHBS2005NO09023

PATIENT
  Age: 51 Year
  Sex: Female

DRUGS (1)
  1. TEGRETOL [Suspect]
     Indication: PAIN
     Dosage: 1 DF/DAY
     Route: 048
     Dates: start: 20040301

REACTIONS (4)
  - DEPRESSED LEVEL OF CONSCIOUSNESS [None]
  - DISSOCIATION [None]
  - FEELING DRUNK [None]
  - VISION BLURRED [None]
